FAERS Safety Report 9436966 (Version 4)
Quarter: 2014Q2

REPORT INFORMATION
  Report Type: Spontaneous
  Country: IT (occurrence: IT)
  Receive Date: 20130802
  Receipt Date: 20140408
  Transmission Date: 20141212
  Serious: Yes (Disabling)
  Sender: FDA-Public Use
  Company Number: IT-BRISTOL-MYERS SQUIBB COMPANY-19155423

PATIENT
  Age: 62 Year
  Sex: Female

DRUGS (8)
  1. METFORMIN HCL TABS [Suspect]
     Indication: DIABETES MELLITUS
     Dosage: TABS
     Route: 048
     Dates: start: 20130524, end: 20130531
  2. EUTIROX [Concomitant]
     Indication: HYPOTHYROIDISM
     Dosage: TABLET
  3. COAPROVEL TABS [Concomitant]
     Indication: HYPERTENSION
     Dosage: 1DF=150MG/12.5MG
     Route: 048
  4. CARDICOR [Concomitant]
     Dosage: TABLET
  5. LANOXIN [Concomitant]
     Dosage: TABLET
  6. CALCITRIOL [Concomitant]
  7. LANSOPRAZOLE [Concomitant]
  8. COUMADIN TABS 5 MG [Concomitant]
     Indication: ATRIAL FIBRILLATION
     Dosage: 1 DF : 5 MG?30TABLETS
     Dates: start: 20120427, end: 20130531

REACTIONS (6)
  - Dyspnoea [Recovered/Resolved]
  - Throat tightness [Recovered/Resolved]
  - Abdominal pain upper [Recovered/Resolved]
  - Diarrhoea [Recovered/Resolved]
  - Abdominal pain [Recovered/Resolved]
  - Nausea [Recovered/Resolved]
